FAERS Safety Report 8072176-9 (Version None)
Quarter: 2012Q1

REPORT INFORMATION
  Report Type: 
  Country: None (occurrence: None)
  Receive Date: 20120126
  Receipt Date: 20120118
  Transmission Date: 20120608
  Serious: Yes (Hospitalization, Other)
  Sender: FDA-Public Use
  Company Number: US-US-EMD SERONO, INC.-7107857

PATIENT
  Sex: Male
  Weight: 81 kg

DRUGS (1)
  1. REBIF [Suspect]
     Indication: MULTIPLE SCLEROSIS
     Route: 058
     Dates: start: 20110514, end: 20111001

REACTIONS (5)
  - MYALGIA [None]
  - DRUG INEFFECTIVE [None]
  - PARAPLEGIA [None]
  - WHITE BLOOD CELL COUNT DECREASED [None]
  - CLONUS [None]
